FAERS Safety Report 18723397 (Version 1)
Quarter: 2021Q1

REPORT INFORMATION
  Report Type: Spontaneous
  Country: US (occurrence: US)
  Receive Date: 20210108
  Receipt Date: 20210108
  Transmission Date: 20210419
  Serious: Yes (Hospitalization)
  Sender: FDA-Public Use
  Company Number: None

PATIENT
  Age: 7 Year
  Sex: Female

DRUGS (18)
  1. BACLOFEN. [Concomitant]
     Active Substance: BACLOFEN
  2. BUDESONIDE. [Concomitant]
     Active Substance: BUDESONIDE
  3. CLONIDINE. [Concomitant]
     Active Substance: CLONIDINE
  4. DIASTAT ACDL GEL [Concomitant]
  5. IBUPROFEN. [Concomitant]
     Active Substance: IBUPROFEN
  6. MIRALAX [Concomitant]
     Active Substance: POLYETHYLENE GLYCOL 3350
  7. VENTOLIN HFA [Concomitant]
     Active Substance: ALBUTEROL SULFATE
  8. ZONISAMIDE. [Concomitant]
     Active Substance: ZONISAMIDE
  9. PULMICORT TURBUHALER [Concomitant]
     Active Substance: BUDESONIDE
  10. GAS RELIEF [Concomitant]
     Active Substance: DIMETHICONE
  11. VIGABATRIN 500MG PWD [Suspect]
     Active Substance: VIGABATRIN
     Indication: EPILEPSY
     Dosage: ?DOSE OR AMOUNT: 3 PKTS IN H20 (30MLS)
     Route: 048
     Dates: start: 20190719
  12. FLUORIDE CHW [Concomitant]
  13. MELATONIN [Concomitant]
     Active Substance: MELATONIN
  14. BENADRYL ALL [Concomitant]
  15. CLONAZEPAM. [Concomitant]
     Active Substance: CLONAZEPAM
  16. GLYCERIN PED SUP [Concomitant]
  17. MELATONIN,MIRALAX3+ [Concomitant]
  18. OMEPRAZLE [Concomitant]
     Active Substance: OMEPRAZOLE

REACTIONS (2)
  - Pneumothorax [None]
  - Therapy interrupted [None]

NARRATIVE: CASE EVENT DATE: 20201227
